FAERS Safety Report 6148311-6 (Version None)
Quarter: 2009Q2

REPORT INFORMATION
  Report Type: 
  Country: None (occurrence: None)
  Receive Date: 20090408
  Receipt Date: 20090403
  Transmission Date: 20091009
  Serious: Yes (Other)
  Sender: FDA-Public Use
  Company Number: GB-MERCK-0904GBR00018

PATIENT
  Age: 39 Year
  Sex: Male

DRUGS (3)
  1. PROPECIA [Suspect]
     Indication: ALOPECIA
     Route: 048
     Dates: start: 20090120, end: 20090303
  2. LORATADINE [Concomitant]
     Route: 065
  3. ALBUTEROL [Concomitant]

REACTIONS (1)
  - DEPRESSION [None]
